FAERS Safety Report 14612142 (Version 1)
Quarter: 2018Q1

REPORT INFORMATION
  Report Type: Spontaneous
  Country: US (occurrence: US)
  Receive Date: 20180307
  Receipt Date: 20180307
  Transmission Date: 20180509
  Serious: Yes (Other)
  Sender: FDA-Public Use
  Company Number: None

PATIENT
  Age: 68 Year
  Sex: Female
  Weight: 56.25 kg

DRUGS (11)
  1. LATANOPROST EYE DROPS [Concomitant]
     Active Substance: LATANOPROST
  2. GLUCOSAMINE [Concomitant]
     Active Substance: GLUCOSAMINE
  3. FINECEA SULPHUR WASH [Concomitant]
  4. VITAMIN C [Concomitant]
     Active Substance: ASCORBIC ACID
  5. SELENIUM [Concomitant]
     Active Substance: SELENIUM
  6. D [Concomitant]
  7. CLINDAMYCIN. [Suspect]
     Active Substance: CLINDAMYCIN
     Indication: GINGIVITIS
     Route: 048
     Dates: start: 20180128, end: 20180130
  8. VITAMIN B [Concomitant]
     Active Substance: VITAMIN B
  9. CAL/MAG [Concomitant]
  10. VITAMIN E [Concomitant]
     Active Substance: .ALPHA.-TOCOPHEROL
  11. OMEGA 3 [Concomitant]
     Active Substance: OMEGA-3 FATTY ACIDS

REACTIONS (1)
  - Dyspepsia [None]

NARRATIVE: CASE EVENT DATE: 20180131
